FAERS Safety Report 10947625 (Version 1)
Quarter: 2015Q1

REPORT INFORMATION
  Report Type: Spontaneous
  Country: BE (occurrence: BE)
  Receive Date: 20150323
  Receipt Date: 20150323
  Transmission Date: 20150721
  Serious: Yes (Other)
  Sender: FDA-Public Use
  Company Number: BE-MYLANLABS-2015M1009125

PATIENT

DRUGS (2)
  1. ERLOTINIB [Suspect]
     Active Substance: ERLOTINIB
     Indication: PANCOAST^S TUMOUR
     Dosage: 150 MG /DAY
     Route: 065
  2. VINORELBINE [Suspect]
     Active Substance: VINORELBINE\VINORELBINE TARTRATE
     Indication: PANCOAST^S TUMOUR
     Dosage: 30 MG/M2 TO 75% OF THE DOSE, NAMELY 44 MG, UP TO THE DAY 64
     Route: 042

REACTIONS (6)
  - Rash papular [Recovered/Resolved]
  - Asthenia [Unknown]
  - Rash pruritic [Recovered/Resolved]
  - Dermatitis acneiform [Recovered/Resolved]
  - Palmar-plantar erythrodysaesthesia syndrome [Recovered/Resolved]
  - Discomfort [Unknown]
